FAERS Safety Report 4499808-6 (Version None)
Quarter: 2004Q4

REPORT INFORMATION
  Report Type: 
  Country: None (occurrence: None)
  Receive Date: 20041110
  Receipt Date: 20041110
  Transmission Date: 20050328
  Serious: Yes (Hospitalization)
  Sender: FDA-Public Use
  Company Number: None

PATIENT
  Age: 78 Year
  Sex: Male
  Weight: 82.5 kg

DRUGS (12)
  1. DIGOXIN [Suspect]
     Indication: ATRIAL FIBRILLATION
     Dosage: 0.25MG,0.25MG D,ORAL
     Route: 048
  2. DONEPEZIL HCL [Concomitant]
  3. GLYBURIDE [Concomitant]
  4. COUMADIN [Concomitant]
  5. BUPROPION HCL [Concomitant]
  6. PAROXETINE HCL [Concomitant]
  7. IRBESARTAN [Concomitant]
  8. CLONAZEPAM [Concomitant]
  9. SPIRONOLACTONE [Concomitant]
  10. FLUNISOLIDE [Concomitant]
  11. IPATROPIUM BROMIDE [Concomitant]
  12. ALBUTEROL [Concomitant]

REACTIONS (1)
  - THERAPEUTIC AGENT TOXICITY [None]
